FAERS Safety Report 14772714 (Version 1)
Quarter: 2018Q2

REPORT INFORMATION
  Report Type: Spontaneous
  Country: US (occurrence: US)
  Receive Date: 20180418
  Receipt Date: 20180418
  Transmission Date: 20180711
  Serious: No
  Sender: FDA-Public Use
  Company Number: US-TEVA-2018-US-881851

PATIENT
  Age: 78 Year
  Sex: Female

DRUGS (2)
  1. LISINOPRIL. [Concomitant]
     Active Substance: LISINOPRIL
     Indication: HYPERTENSION
     Route: 065
     Dates: start: 201802
  2. AMOXAPINE. [Suspect]
     Active Substance: AMOXAPINE
     Route: 065
     Dates: end: 20180320

REACTIONS (4)
  - Anxiety [Recovering/Resolving]
  - Nausea [Recovering/Resolving]
  - Drug withdrawal syndrome [Recovering/Resolving]
  - Decreased appetite [Recovering/Resolving]
